FAERS Safety Report 5557740-0 (Version None)
Quarter: 2007Q4

REPORT INFORMATION
  Report Type: 
  Country: None (occurrence: None)
  Receive Date: 20071214
  Receipt Date: 20071203
  Transmission Date: 20080405
  Serious: No
  Sender: FDA-Public Use
  Company Number: US-JNJFOC-20071100907

PATIENT
  Sex: Female

DRUGS (3)
  1. INVEGA [Suspect]
     Indication: ANTIDEPRESSANT THERAPY
     Route: 048
  2. EFFEXOR XR [Concomitant]
  3. SEROQUEL [Concomitant]

REACTIONS (2)
  - DEPRESSED MOOD [None]
  - SOMNOLENCE [None]
